FAERS Safety Report 13094708 (Version 1)
Quarter: 2017Q1

REPORT INFORMATION
  Report Type: Spontaneous
  Country: JP (occurrence: JP)
  Receive Date: 20170106
  Receipt Date: 20170106
  Transmission Date: 20170428
  Serious: Yes (Death, Other)
  Sender: FDA-Public Use
  Company Number: JP-HQ SPECIALTY-JP-2016INT001010

PATIENT
  Sex: Male

DRUGS (1)
  1. CISPLATIN. [Suspect]
     Active Substance: CISPLATIN
     Indication: SQUAMOUS CELL CARCINOMA OF HEAD AND NECK
     Dosage: 40 MG/M2, ON WEEKS 1, 2, 3, 5, 6, AND 7 OF THE RADIOTHERAPY

REACTIONS (3)
  - Pneumonia aspiration [Fatal]
  - Sepsis [Fatal]
  - Mucosal inflammation [Unknown]
